FAERS Safety Report 8692371 (Version 5)
Quarter: 2013Q2

REPORT INFORMATION
  Report Type: Spontaneous
  Country: US (occurrence: US)
  Receive Date: 20120730
  Receipt Date: 20130604
  Transmission Date: 20140414
  Serious: Yes (Other)
  Sender: FDA-Public Use
  Company Number: US-PFIZER INC-2012179034

PATIENT
  Age: 43 Year
  Sex: Male
  Weight: 101.13 kg

DRUGS (12)
  1. NEURONTIN [Suspect]
     Indication: NEUROPATHY PERIPHERAL
     Dosage: 600 MG, 3X/DAY
     Dates: start: 2009
  2. ARTHROTEC [Suspect]
     Indication: OSTEOARTHRITIS
     Dosage: 75 MG, 2X/DAY
  3. ARTHROTEC [Suspect]
     Indication: PSORIATIC ARTHROPATHY
  4. ARTHROTEC [Suspect]
     Indication: INTERVERTEBRAL DISC DEGENERATION
  5. ARTHROTEC [Suspect]
     Indication: SCIATICA
  6. NITROSTAT [Suspect]
     Indication: ATTENTION DEFICIT/HYPERACTIVITY DISORDER
     Dosage: 75 MG, 2X/DAY
     Dates: start: 2010
  7. NITROSTAT [Suspect]
     Indication: TACHYCARDIA
     Dosage: UNK, AS NEEDED
  8. LYRICA [Suspect]
     Indication: NEUROPATHY PERIPHERAL
     Dosage: 50 MG, 2X/DAY
     Dates: start: 201210
  9. LYRICA [Suspect]
     Dosage: 150 MG, 2X/DAY
  10. CELEXA [Concomitant]
     Indication: HYPERTENSION
     Dosage: 40 MG, DAILY
  11. VALIUM [Concomitant]
     Indication: ANXIETY
     Dosage: 10 MG, 4X/DAY
  12. CRESTOR [Concomitant]
     Indication: BLOOD CHOLESTEROL ABNORMAL
     Dosage: 40 MG DAILY

REACTIONS (13)
  - Malignant neoplasm of eye [Unknown]
  - Local swelling [Unknown]
  - Cardiac disorder [Unknown]
  - Joint injury [Unknown]
  - Optic glioma [Not Recovered/Not Resolved]
  - Weight decreased [Unknown]
  - Drug ineffective for unapproved indication [Unknown]
  - Myocardial infarction [Unknown]
  - Tachycardia [Unknown]
  - Arthritis [Unknown]
  - Headache [Not Recovered/Not Resolved]
  - Pain [Not Recovered/Not Resolved]
  - Drug ineffective [Unknown]
